FAERS Safety Report 9989524 (Version 2)
Quarter: 2014Q1

REPORT INFORMATION
  Report Type: Report from Study
  Country: US (occurrence: US)
  Receive Date: 20140310
  Receipt Date: 20140310
  Transmission Date: 20141002
  Serious: No
  Sender: FDA-Public Use
  Company Number: US-ABBVIE-13P-163-1115537-00

PATIENT
  Age: 39 Year
  Sex: Female
  Weight: 94.43 kg

DRUGS (6)
  1. HUMIRA [Suspect]
     Indication: RHEUMATOID ARTHRITIS
     Dates: start: 201303, end: 20130601
  2. HUMIRA [Suspect]
     Dates: start: 20130726
  3. LO/OVRAL [Concomitant]
     Indication: PRODUCT USED FOR UNKNOWN INDICATION
  4. NEXIUM [Concomitant]
     Indication: PRODUCT USED FOR UNKNOWN INDICATION
  5. VICODIN [Concomitant]
     Indication: PRODUCT USED FOR UNKNOWN INDICATION
  6. VOLTAREN [Concomitant]
     Indication: PRODUCT USED FOR UNKNOWN INDICATION

REACTIONS (8)
  - Anxiety [Not Recovered/Not Resolved]
  - Device malfunction [Unknown]
  - Incorrect dose administered [Recovered/Resolved]
  - Injection site urticaria [Not Recovered/Not Resolved]
  - Injection site pain [Not Recovered/Not Resolved]
  - Injection site pruritus [Not Recovered/Not Resolved]
  - Injection site warmth [Not Recovered/Not Resolved]
  - Injection site vesicles [Not Recovered/Not Resolved]
